FAERS Safety Report 8859971 (Version 1)
Quarter: 2012Q4

REPORT INFORMATION
  Report Type: 
  Country: CN (occurrence: CN)
  Receive Date: 20121025
  Receipt Date: 20121025
  Transmission Date: 20130627
  Serious: Yes (Other)
  Sender: FDA-Public Use
  Company Number: CN-PFIZER INC-2012264641

PATIENT
  Age: 6 None
  Sex: Female

DRUGS (1)
  1. PHARMORUBICIN [Suspect]
     Indication: BREAST CANCER

REACTIONS (1)
  - Glaucoma [Unknown]
